FAERS Safety Report 5719909-1 (Version None)
Quarter: 2008Q2

REPORT INFORMATION
  Report Type: 
  Country: None (occurrence: None)
  Receive Date: 20080424
  Receipt Date: 20080416
  Transmission Date: 20081010
  Serious: Yes (Hospitalization)
  Sender: FDA-Public Use
  Company Number: 2008SP004605

PATIENT
  Age: 71 Year
  Sex: Male

DRUGS (4)
  1. INTRON A [Suspect]
     Indication: DRUG USE FOR UNKNOWN INDICATION
     Dosage: 38 MIU
     Dates: start: 20080225, end: 20080226
  2. LIPITOR [Concomitant]
  3. LISINOPRIL [Concomitant]
  4. INDOMETHACIN [Concomitant]

REACTIONS (6)
  - ATAXIA [None]
  - CRANIAL NERVE DISORDER [None]
  - DIPLOPIA [None]
  - DYSPHAGIA [None]
  - HYPOAESTHESIA FACIAL [None]
  - HYPOAESTHESIA ORAL [None]
